FAERS Safety Report 8729587 (Version 2)
Quarter: 2015Q2

REPORT INFORMATION
  Report Type: Report from Study
  Country: US (occurrence: US)
  Receive Date: 20120817
  Receipt Date: 20150407
  Transmission Date: 20150821
  Serious: Yes (Hospitalization)
  Sender: FDA-Public Use
  Company Number: US-ROCHE-1101936

PATIENT
  Sex: Female

DRUGS (5)
  1. ASA [Concomitant]
     Active Substance: ASPIRIN
  2. ACTIVASE [Suspect]
     Active Substance: ALTEPLASE
     Indication: ANGINA UNSTABLE
     Route: 065
  3. NITROGLYCERINE [Concomitant]
     Active Substance: NITROGLYCERIN
     Route: 060
  4. HEPARIN [Concomitant]
     Active Substance: HEPARIN SODIUM
     Dosage: PUMP AT 20 UNITS PER HOUR
     Route: 065
  5. PREMARIN [Concomitant]
     Active Substance: ESTROGENS, CONJUGATED

REACTIONS (3)
  - Dyspnoea [Unknown]
  - Hyperhidrosis [Unknown]
  - Pain [Unknown]
